FAERS Safety Report 7557460-7 (Version None)
Quarter: 2011Q2

REPORT INFORMATION
  Report Type: 
  Country: None (occurrence: None)
  Receive Date: 20110620
  Receipt Date: 20110607
  Transmission Date: 20111010
  Serious: Yes (Hospitalization)
  Sender: FDA-Public Use
  Company Number: KR-NAPPMUNDI-MAG-2011-0001523

PATIENT
  Sex: Male

DRUGS (11)
  1. METOPROLOL TARTRATE [Concomitant]
     Indication: HYPERTENSION
     Dosage: 1 TABLET, UNK
     Route: 048
     Dates: start: 19890501
  2. OXYCODONE HCL [Suspect]
     Indication: ANALGESIC THERAPY
     Dosage: 20 MG, BID
     Route: 048
     Dates: start: 20110526, end: 20110608
  3. PENTOSAN POLYSULFATE SODIUM [Concomitant]
     Indication: BENIGN PROSTATIC HYPERPLASIA
     Dosage: 1 TABLET, UNK
     Route: 048
     Dates: start: 20101116, end: 20110523
  4. MULTI-VITAMINS [Concomitant]
     Indication: MEDICAL DIET
     Dosage: 1 AMPULE, UNK
     Route: 042
     Dates: start: 20110605
  5. FAMOTIDINE [Concomitant]
     Indication: PROPHYLAXIS
     Dosage: 20 MG, UNK
     Route: 042
     Dates: start: 20110531
  6. OXYCODONE HCL [Suspect]
     Dosage: 10 MG, BID
     Route: 048
     Dates: start: 20110519, end: 20110525
  7. SIMVASTATIN [Concomitant]
     Indication: HYPERLIPIDAEMIA
     Dosage: 1 TABLET, UNK
     Route: 048
     Dates: start: 20091012, end: 20110604
  8. SODIUM CHLORIDE [Concomitant]
     Indication: FLUID REPLACEMENT
     Dosage: 1 BAG
     Route: 042
     Dates: start: 20110605, end: 20110612
  9. SODIUM CHLORIDE [Concomitant]
     Indication: PROPHYLAXIS
     Dosage: 2 AMPULE, UNK
     Route: 042
     Dates: start: 20110531
  10. LOPERAMIDE OXIDE [Concomitant]
     Indication: DIARRHOEA
     Dosage: 1 TABLET, PRN
     Route: 048
     Dates: start: 20080621, end: 20110523
  11. POTASSIUM CHLORIDE [Concomitant]
     Indication: PROPHYLAXIS
     Dosage: 1 AMPULE, UNK
     Route: 042
     Dates: start: 20110531

REACTIONS (5)
  - ABDOMINAL DISTENSION [None]
  - MECHANICAL ILEUS [None]
  - METASTASES TO LUNG [None]
  - VOMITING [None]
  - NAUSEA [None]
